FAERS Safety Report 8456348-7 (Version None)
Quarter: 2012Q2

REPORT INFORMATION
  Report Type: 
  Country: None (occurrence: None)
  Receive Date: 20120621
  Receipt Date: 20120614
  Transmission Date: 20120825
  Serious: Yes (Hospitalization)
  Sender: FDA-Public Use
  Company Number: US-GLAXOSMITHKLINE-A0981850A

PATIENT
  Age: 43 Year
  Sex: Female

DRUGS (1)
  1. FLOLAN [Suspect]
     Route: 065
     Dates: start: 20120319

REACTIONS (4)
  - OEDEMA PERIPHERAL [None]
  - THROMBOSIS [None]
  - RENAL FAILURE [None]
  - FLUID RETENTION [None]
